FAERS Safety Report 19087928 (Version 1)
Quarter: 2021Q2

REPORT INFORMATION
  Report Type: Spontaneous
  Country: US (occurrence: US)
  Receive Date: 20210402
  Receipt Date: 20210402
  Transmission Date: 20210717
  Serious: Yes (Death, Life-Threatening, Hospitalization, Other)
  Sender: FDA-Public Use
  Company Number: US-PURDUE-USA-2021-0239930

PATIENT
  Age: 35 Year
  Sex: Female
  Weight: 59 kg

DRUGS (2)
  1. METHYLPHENIDATE HYDROCHLORIDE. [Suspect]
     Active Substance: METHYLPHENIDATE HYDROCHLORIDE
     Indication: PRODUCT USED FOR UNKNOWN INDICATION
     Dosage: UNK UNK, SINGLE
     Route: 048
  2. BUPROPION. [Suspect]
     Active Substance: BUPROPION
     Indication: PRODUCT USED FOR UNKNOWN INDICATION
     Dosage: 90 TABLET, SINGLE
     Route: 048

REACTIONS (17)
  - Brain death [Fatal]
  - Intentional overdose [Fatal]
  - Confusional state [Unknown]
  - Status epilepticus [Unknown]
  - Electrocardiogram QT prolonged [Unknown]
  - Hypotension [Unknown]
  - Cardiac arrest [Recovered/Resolved]
  - Bradycardia [Unknown]
  - Heart rate increased [Unknown]
  - Blood pressure increased [Unknown]
  - Seizure [Recovered/Resolved]
  - Metabolic acidosis [Unknown]
  - Blood lactic acid increased [Unknown]
  - Generalised tonic-clonic seizure [Recovered/Resolved]
  - Somnolence [Unknown]
  - Hyperhidrosis [Unknown]
  - Sinus tachycardia [Unknown]
